FAERS Safety Report 25909029 (Version 1)
Quarter: 2025Q4

REPORT INFORMATION
  Report Type: Spontaneous
  Country: US (occurrence: US)
  Receive Date: 20251011
  Receipt Date: 20251011
  Transmission Date: 20260118
  Serious: Yes (Death, Hospitalization, Other)
  Sender: IPCA
  Company Number: US-IPCA LABORATORIES LIMITED-IPC-2025-US-002755

PATIENT

DRUGS (3)
  1. HYDROXYCHLOROQUINE [Suspect]
     Active Substance: HYDROXYCHLOROQUINE
     Indication: Product used for unknown indication
     Dosage: 6 GRAM
     Route: 048
  2. METFORMIN [Suspect]
     Active Substance: METFORMIN HYDROCHLORIDE
     Indication: Product used for unknown indication
     Dosage: 30 GRAM
     Route: 048
  3. TRAZODONE [Suspect]
     Active Substance: TRAZODONE HYDROCHLORIDE
     Indication: Product used for unknown indication
     Dosage: 6 GRAM
     Route: 048

REACTIONS (13)
  - Multiple organ dysfunction syndrome [Fatal]
  - Pneumonia aspiration [Fatal]
  - Acute respiratory failure [Recovering/Resolving]
  - Electrocardiogram QT prolonged [Fatal]
  - Electrocardiogram QRS complex prolonged [Fatal]
  - Hypokalaemia [Recovering/Resolving]
  - Hyperkalaemia [Recovering/Resolving]
  - Hypotension [Fatal]
  - Metabolic acidosis [Recovering/Resolving]
  - Electrocardiogram PR prolongation [Recovering/Resolving]
  - Mental status changes [Fatal]
  - Toxicity to various agents [Fatal]
  - Intentional overdose [Unknown]
